FAERS Safety Report 8978430 (Version 4)
Quarter: 2013Q2

REPORT INFORMATION
  Report Type: Spontaneous
  Country: GB (occurrence: GB)
  Receive Date: 20121221
  Receipt Date: 20130412
  Transmission Date: 20140414
  Serious: Yes (Other)
  Sender: FDA-Public Use
  Company Number: GB-PFIZER INC-2012319810

PATIENT
  Age: 78 Year
  Sex: Male

DRUGS (9)
  1. SILDENAFIL CITRATE [Suspect]
     Indication: PULMONARY HYPERTENSION
     Dosage: 1MG/H ON CONTINUOUS INFUSION, TOTAL DOSE - 3.17MG
     Route: 042
     Dates: start: 20120606, end: 20120606
  2. SILDENAFIL CITRATE [Suspect]
     Indication: CORONARY ARTERY BYPASS
  3. ADRENALINE [Concomitant]
     Indication: CARDIAC FAILURE HIGH OUTPUT
     Dosage: 0.05 MG/M2, UNK
     Route: 042
     Dates: start: 20120530
  4. ADRENALINE [Concomitant]
     Dosage: 0.04 UG KG/MIN
  5. AMIODARONE [Concomitant]
     Indication: ARRHYTHMIA
     Dosage: 25 MG, UNK
     Route: 042
     Dates: start: 20120530
  6. NORADRENALINE [Concomitant]
     Indication: HYPOTENSION
     Dosage: 0.07 MG/M2, UNK
     Route: 042
     Dates: start: 20120530
  7. NORADRENALINE [Concomitant]
     Dosage: 0.12 UG/KG MIN
  8. LEVOSIMENDAN [Concomitant]
     Dosage: 0.1 UG/M2, UNK
     Route: 042
     Dates: start: 20120604, end: 20120606
  9. INOMAX [Concomitant]
     Dosage: 15 PARTS PER MILLION
     Route: 055
     Dates: start: 20120531, end: 20120608

REACTIONS (3)
  - Hypotension [Recovered/Resolved]
  - Renal failure [Unknown]
  - Cardiac failure [Unknown]
